FAERS Safety Report 6371474-4 (Version None)
Quarter: 2009Q3

REPORT INFORMATION
  Report Type: 
  Country: None (occurrence: None)
  Receive Date: 20090923
  Receipt Date: 20071228
  Transmission Date: 20100115
  Serious: Yes (Other)
  Sender: FDA-Public Use
  Company Number: US-ASTRAZENECA-2007UW09708

PATIENT
  Age: 6978 Day
  Sex: Female
  Weight: 61.2 kg

DRUGS (7)
  1. SEROQUEL [Suspect]
     Indication: BIPOLAR DISORDER
     Dosage: DOSE- 25 MG - 75 MG
     Route: 048
     Dates: start: 20030127
  2. SEROQUEL [Suspect]
     Route: 048
     Dates: start: 20030801, end: 20060501
  3. STRATTARA [Concomitant]
     Route: 048
  4. WELLBUTRIN [Concomitant]
  5. ADDERALL XR 30 [Concomitant]
     Dosage: STRENGTH- 15 MG, 20 MG. DOSE- 15- 20 MG DAILY
  6. DIFLUCAN [Concomitant]
  7. BIAXIN XL [Concomitant]

REACTIONS (1)
  - PANCREATITIS ACUTE [None]
